FAERS Safety Report 4693601-7 (Version None)
Quarter: 2005Q2

REPORT INFORMATION
  Report Type: 
  Country: None (occurrence: None)
  Receive Date: 20050615
  Receipt Date: 20050606
  Transmission Date: 20051028
  Serious: Yes (Other)
  Sender: FDA-Public Use
  Company Number: 2005084992

PATIENT
  Age: 68 Year
  Sex: Female
  Weight: 65.7716 kg

DRUGS (9)
  1. LIPITOR [Suspect]
     Indication: BLOOD CHOLESTEROL INCREASED
     Dosage: 10 MG (10 MG, 1 IN 1 D)
  2. ACETYLSALICYLIC ACID SRT [Concomitant]
  3. PROPRANOLOL [Concomitant]
  4. ENALAPRIL [Concomitant]
  5. VITAMINS [Concomitant]
  6. HAWTHORN (CRATAEGUS) [Concomitant]
  7. ASCORBIC ACID [Concomitant]
  8. VITAMIN E [Concomitant]
  9. MULTI-VITAMINS [Concomitant]

REACTIONS (10)
  - ABNORMAL CHEST SOUND [None]
  - ATRIAL FIBRILLATION [None]
  - CHEST PAIN [None]
  - CONDITION AGGRAVATED [None]
  - DIPLOPIA [None]
  - DIZZINESS [None]
  - DYSPNOEA [None]
  - FALL [None]
  - FATIGUE [None]
  - TRANSIENT ISCHAEMIC ATTACK [None]
